FAERS Safety Report 14798190 (Version 1)
Quarter: 2018Q2

REPORT INFORMATION
  Report Type: Report from Study
  Country: PL (occurrence: PL)
  Receive Date: 20180424
  Receipt Date: 20180424
  Transmission Date: 20180711
  Serious: Yes (Death, Other)
  Sender: FDA-Public Use
  Company Number: PL-VISTAPHARM, INC.-VER201804-000574

PATIENT
  Sex: Male
  Weight: 3.15 kg

DRUGS (6)
  1. VIGABATRINE [Concomitant]
     Active Substance: VIGABATRIN
     Indication: SEIZURE
  2. TOPIRAMATE. [Concomitant]
     Active Substance: TOPIRAMATE
     Indication: SEIZURE
  3. CLOBAZAM [Concomitant]
     Active Substance: CLOBAZAM
     Indication: SEIZURE
  4. VALPROIC ACID. [Suspect]
     Active Substance: VALPROIC ACID
     Indication: SEIZURE
  5. LAMOTRIGINE. [Concomitant]
     Active Substance: LAMOTRIGINE
     Indication: SEIZURE
  6. SYNACTHEN [Concomitant]
     Active Substance: COSYNTROPIN
     Indication: SEIZURE

REACTIONS (9)
  - Hypertransaminasaemia [Unknown]
  - Multiple organ dysfunction syndrome [Fatal]
  - Hepatic failure [Fatal]
  - Renal failure [Unknown]
  - General physical health deterioration [Fatal]
  - Congestive cardiomyopathy [Fatal]
  - Hyperlactacidaemia [Unknown]
  - Drug hypersensitivity [Unknown]
  - Mitochondrial toxicity [Unknown]
